FAERS Safety Report 8057934-9 (Version None)
Quarter: 2011Q4

REPORT INFORMATION
  Report Type: 
  Country: None (occurrence: None)
  Receive Date: 20111220
  Receipt Date: 20110509
  Transmission Date: 20120403
  Serious: Yes (Other)
  Sender: FDA-Public Use
  Company Number: PHHY2011US19249

PATIENT
  Age: 59 Year
  Sex: Male

DRUGS (4)
  1. BACTRIM [Concomitant]
  2. METOPROLOL TARTRATE [Concomitant]
  3. MYFORTIC [Suspect]
     Indication: WEGENER'S GRANULOMATOSIS
     Dosage: 360 MG,  BID, ORAL, 1080 MG, ORAL
     Route: 048
     Dates: start: 20050906
  4. TRAZODONE HCL [Concomitant]

REACTIONS (4)
  - HEPATIC CIRRHOSIS [None]
  - HEPATIC NEOPLASM MALIGNANT [None]
  - NEOPLASM MALIGNANT [None]
  - HEPATITIS C [None]
